FAERS Safety Report 10265760 (Version 4)
Quarter: 2015Q4

REPORT INFORMATION
  Report Type: Spontaneous
  Country: US (occurrence: US)
  Receive Date: 20140627
  Receipt Date: 20151215
  Transmission Date: 20160304
  Serious: Yes (Hospitalization, Other)
  Sender: FDA-Public Use
  Company Number: US-GLAXOSMITHKLINE-A1022375A

PATIENT
  Age: 94 Year
  Sex: Female

DRUGS (8)
  1. ADVAIR HFA [Suspect]
     Active Substance: FLUTICASONE PROPIONATE\SALMETEROL XINAFOATE
     Dosage: 250 MCG
  2. ADVAIR HFA [Suspect]
     Active Substance: FLUTICASONE PROPIONATE\SALMETEROL XINAFOATE
     Indication: CHRONIC OBSTRUCTIVE PULMONARY DISEASE
     Dosage: START DATE: 21 JAN 2011: STRENGTH: 100/50MCG, UNKNOWN DOSING.START DATE: 10 JAN 2013: STRENGTH:[...]
     Route: 055
     Dates: start: 20110121, end: 2015
  3. ADVAIR HFA [Suspect]
     Active Substance: FLUTICASONE PROPIONATE\SALMETEROL XINAFOATE
     Dosage: UNK
     Route: 065
     Dates: start: 20151116
  4. VENTOLIN [Suspect]
     Active Substance: ALBUTEROL SULFATE
     Indication: CHRONIC OBSTRUCTIVE PULMONARY DISEASE
     Dosage: 90 MCG. UNKNOWN DOSING.
     Route: 065
     Dates: start: 20130515, end: 2015
  5. XANAX [Concomitant]
     Active Substance: ALPRAZOLAM
  6. SYMBICORT [Suspect]
     Active Substance: BUDESONIDE\FORMOTEROL FUMARATE DIHYDRATE
     Indication: PRODUCT USED FOR UNKNOWN INDICATION
  7. ADVAIR HFA [Suspect]
     Active Substance: FLUTICASONE PROPIONATE\SALMETEROL XINAFOATE
     Dosage: 1 PUFF(S), BID (250/50 MCG)
     Route: 055
     Dates: start: 201511
  8. ALBUTEROL. [Suspect]
     Active Substance: ALBUTEROL

REACTIONS (16)
  - Nasopharyngitis [Unknown]
  - Drug hypersensitivity [Unknown]
  - Heart rate increased [Unknown]
  - Blood pressure increased [Unknown]
  - Adverse drug reaction [Unknown]
  - Pneumonia [Unknown]
  - Productive cough [Unknown]
  - Ill-defined disorder [Unknown]
  - Pulmonary pain [Recovering/Resolving]
  - Overdose [Recovering/Resolving]
  - Hospitalisation [Unknown]
  - Cough [Unknown]
  - Palpitations [Recovering/Resolving]
  - Nasopharyngitis [Unknown]
  - Therapy cessation [Unknown]
  - Malaise [Unknown]

NARRATIVE: CASE EVENT DATE: 2015
